FAERS Safety Report 7946412-0 (Version None)
Quarter: 2011Q4

REPORT INFORMATION
  Report Type: 
  Country: None (occurrence: None)
  Receive Date: 20111129
  Receipt Date: 20060511
  Transmission Date: 20120403
  Serious: Yes (Other)
  Sender: FDA-Public Use
  Company Number: BR-ROCHE-1016939

PATIENT
  Age: 43 Year
  Sex: Male

DRUGS (2)
  1. XOLAIR [Suspect]
     Indication: PRODUCT USED FOR UNKNOWN INDICATION
     Dosage: 1.5 AMPULE
  2. XOLAIR [Suspect]
     Dosage: 1 DOSE
     Dates: start: 20060427

REACTIONS (1)
  - ASTHMA [None]
